FAERS Safety Report 10976404 (Version 2)
Quarter: 2015Q2

REPORT INFORMATION
  Report Type: Spontaneous
  Country: US (occurrence: US)
  Receive Date: 20150401
  Receipt Date: 20150525
  Transmission Date: 20150821
  Serious: Yes (Other)
  Sender: FDA-Public Use
  Company Number: US-JNJFOC-20130717688

PATIENT
  Sex: Male

DRUGS (2)
  1. ZIPRASIDONE [Concomitant]
     Active Substance: ZIPRASIDONE
     Indication: PRODUCT USED FOR UNKNOWN INDICATION
     Route: 065
  2. RISPERDAL [Suspect]
     Active Substance: RISPERIDONE
     Indication: SCHIZOPHRENIA
     Route: 048
     Dates: start: 2002, end: 2006

REACTIONS (5)
  - Gynaecomastia [Unknown]
  - Weight increased [Not Recovered/Not Resolved]
  - Tardive dyskinesia [Unknown]
  - Emotional distress [Unknown]
  - Dysphagia [Unknown]
